FAERS Safety Report 19266734 (Version 1)
Quarter: 2021Q2

REPORT INFORMATION
  Report Type: Other
  Country: CN (occurrence: CN)
  Receive Date: 20210517
  Receipt Date: 20210517
  Transmission Date: 20210717
  Serious: Yes (Other)
  Sender: FDA-Public Use
  Company Number: CN-ROCHE-2830795

PATIENT
  Age: 82 Year
  Sex: Female

DRUGS (2)
  1. ALTEPLASE. [Suspect]
     Active Substance: ALTEPLASE
     Indication: ISCHAEMIC STROKE
     Dosage: BODY WEIGHT, MAXIMUM 90MG, 10% OF THE DOSE AS A BOLUS
     Route: 042
  2. ALTEPLASE. [Suspect]
     Active Substance: ALTEPLASE
     Dosage: FOLLOWED BY A 60?MIN INFUSION
     Route: 042

REACTIONS (3)
  - Brain herniation [Unknown]
  - Cerebral infarction [Unknown]
  - Brain oedema [Unknown]
